FAERS Safety Report 6891337-5 (Version None)
Quarter: 2010Q3

REPORT INFORMATION
  Report Type: 
  Country: None (occurrence: None)
  Receive Date: 20100731
  Receipt Date: 20090805
  Transmission Date: 20110219
  Serious: No
  Sender: FDA-Public Use
  Company Number: US-PFIZER INC-2008089381

PATIENT
  Sex: Female
  Weight: 54.545 kg

DRUGS (5)
  1. LIPITOR [Suspect]
     Indication: CORONARY ARTERIAL STENT INSERTION
     Dates: start: 20080101, end: 20080719
  2. PLAVIX [Concomitant]
  3. METOPROLOL TARTRATE [Concomitant]
  4. ENALAPRIL [Concomitant]
  5. CRESTOR [Suspect]
     Dosage: UNK
     Dates: start: 20081001

REACTIONS (3)
  - BLOOD GLUCOSE DECREASED [None]
  - HIGH DENSITY LIPOPROTEIN DECREASED [None]
  - MUSCLE SPASMS [None]
